FAERS Safety Report 5207980-5 (Version None)
Quarter: 2007Q1

REPORT INFORMATION
  Report Type: 
  Country: None (occurrence: None)
  Receive Date: 20070110
  Receipt Date: 20061229
  Transmission Date: 20070707
  Serious: Yes (Death, Hospitalization)
  Sender: FDA-Public Use
  Company Number: HQWYE128102JAN07

PATIENT
  Age: 74 Year
  Sex: Female

DRUGS (13)
  1. CORDARONE [Suspect]
     Indication: HYPERTENSIVE CARDIOMYOPATHY
     Dosage: 200 MG 1X PER 1 DAY; ORAL, FOR YEARS
     Route: 048
  2. GENTAMICIN [Suspect]
     Dosage: 80 MG,/8 INJECTIONS TOTAL; PARENTERAL
     Route: 051
     Dates: start: 20060713, end: 20060715
  3. LASIX [Suspect]
     Indication: HYPERTENSIVE CARDIOMYOPATHY
     Dosage: 500 MG 1X PER 1 DAY; ORAL
     Route: 048
  4. TOBRAMYCIN SULFATE [Suspect]
     Indication: SKIN ULCER
     Dosage: 25 MG/8 INJECTIONS TOTAL; PARENTERAL
     Route: 051
     Dates: start: 20060710, end: 20060712
  5. PREVISCAN (FLUINDIONE, ) [Suspect]
     Indication: HYPERTENSIVE CARDIOMYOPATHY
     Dosage: 20 MG, 1X PER 1 DAY; ORAL
     Route: 048
  6. ALLOPURINOL [Suspect]
     Dosage: ORAL
     Route: 048
     Dates: start: 20060601, end: 20060922
  7. ALDACTONE [Concomitant]
  8. ADANCOR (NICORANDIL) [Concomitant]
  9. PERINDOPRIL ERBUMINE [Concomitant]
  10. IMOVANE (ZOPICLONE) [Concomitant]
  11. INEXIUM (ESOMEPRAZOLE [Concomitant]
  12. SEREVENT [Concomitant]
  13. MIXTARD HUMAN 70/30 [Concomitant]

REACTIONS (14)
  - CARDIOMYOPATHY [None]
  - DERMATITIS ALLERGIC [None]
  - DISEASE PROGRESSION [None]
  - ECZEMA [None]
  - EPIDERMAL NECROSIS [None]
  - PARAKERATOSIS [None]
  - PRURIGO [None]
  - PYREXIA [None]
  - RASH ERYTHEMATOUS [None]
  - RASH PUSTULAR [None]
  - RENAL FAILURE CHRONIC [None]
  - SKIN EXFOLIATION [None]
  - SKIN ULCER [None]
  - TOXIC SKIN ERUPTION [None]
